FAERS Safety Report 9621072 (Version 2)
Quarter: 2013Q4

REPORT INFORMATION
  Report Type: Spontaneous
  Country: DE (occurrence: DE)
  Receive Date: 20131015
  Receipt Date: 20131105
  Transmission Date: 20140711
  Serious: Yes (Other)
  Sender: FDA-Public Use
  Company Number: DE-ASTELLAS-2013EU008738

PATIENT
  Age: 75 Year
  Sex: Male
  Weight: 64 kg

DRUGS (6)
  1. XTANDI [Suspect]
     Indication: PROSTATE CANCER METASTATIC
     Dosage: 40 MG, QID
     Route: 048
     Dates: start: 20130903, end: 20131008
  2. FERRO SANOL                        /00023502/ [Concomitant]
     Indication: IRON DEFICIENCY
     Dosage: 40 MG, UID/QD
     Route: 048
     Dates: start: 20130508
  3. CALCICARE D3 [Concomitant]
     Indication: PROPHYLAXIS
     Dosage: 600 MG, UID/QD
     Route: 048
     Dates: start: 20130315
  4. ZOLADEX                            /00732101/ [Concomitant]
     Indication: PROSTATE CANCER
     Dosage: 10.8 MG, OTHER
     Route: 058
     Dates: start: 20110118
  5. METAMIZOLE [Concomitant]
     Indication: PAIN
     Dosage: 20 DROPS, QID
     Route: 048
     Dates: start: 20130919
  6. NOVAMINSULFON [Concomitant]
     Indication: PAIN
     Dosage: 500 MG, PRN
     Route: 048
     Dates: start: 20130904

REACTIONS (1)
  - Hepatic enzyme increased [Recovered/Resolved with Sequelae]
